FAERS Safety Report 4750409-1 (Version None)
Quarter: 2005Q3

REPORT INFORMATION
  Report Type: 
  Country: None (occurrence: None)
  Receive Date: 20050818
  Receipt Date: 20050805
  Transmission Date: 20060218
  Serious: Yes (Disabling, Other)
  Sender: FDA-Public Use
  Company Number: 2005112486

PATIENT
  Sex: Female

DRUGS (1)
  1. XALATAN [Suspect]
     Indication: ILL-DEFINED DISORDER
     Dosage: OPHTHALMIC
     Route: 047

REACTIONS (3)
  - BLINDNESS [None]
  - CARDIAC PACEMAKER INSERTION [None]
  - EYE OPERATION [None]
